FAERS Safety Report 7272221-4 (Version None)
Quarter: 2011Q1

REPORT INFORMATION
  Report Type: 
  Country: None (occurrence: None)
  Receive Date: 20110203
  Receipt Date: 20110121
  Transmission Date: 20110831
  Serious: Yes (Other)
  Sender: FDA-Public Use
  Company Number: PHHY2011US05616

PATIENT
  Sex: Female

DRUGS (1)
  1. EXJADE [Suspect]
     Dosage: 500 MG DAILY
     Route: 048

REACTIONS (9)
  - ACTIVITIES OF DAILY LIVING IMPAIRED [None]
  - PRURITUS [None]
  - BALANCE DISORDER [None]
  - HEPATIC PAIN [None]
  - RASH [None]
  - DIZZINESS [None]
  - COGNITIVE DISORDER [None]
  - CONFUSIONAL STATE [None]
  - ABDOMINAL PAIN UPPER [None]
